FAERS Safety Report 24263995 (Version 1)
Quarter: 2024Q3

REPORT INFORMATION
  Report Type: Spontaneous
  Country: US (occurrence: None)
  Receive Date: 20240828
  Receipt Date: 20240828
  Transmission Date: 20241016
  Serious: Yes (Hospitalization)
  Sender: Public
  Company Number: None

PATIENT
  Age: 72 Year
  Sex: Female

DRUGS (1)
  1. HUMIRA [Suspect]
     Active Substance: ADALIMUMAB
     Indication: Behcet^s syndrome
     Dosage: FREQUENCY : EVERY OTHER WEEK;?

REACTIONS (11)
  - Cardiac failure [None]
  - Brain fog [None]
  - Alopecia [None]
  - Chills [None]
  - Chills [None]
  - Pyrexia [None]
  - Nausea [None]
  - Headache [None]
  - Dyspnoea exertional [None]
  - Bedridden [None]
  - Blood pressure increased [None]
